FAERS Safety Report 6716980-5 (Version None)
Quarter: 2010Q2

REPORT INFORMATION
  Report Type: 
  Country: None (occurrence: None)
  Receive Date: 20100506
  Receipt Date: 20100506
  Transmission Date: 20101027
  Serious: Yes (Other)
  Sender: FDA-Public Use
  Company Number: None

PATIENT
  Sex: Male
  Weight: 81.6475 kg

DRUGS (2)
  1. GLUCOPHAGE [Suspect]
     Dosage: DAILY ORAL
     Route: 048
  2. GLIPIZIDE [Suspect]
     Dosage: DAILY ORAL
     Route: 048

REACTIONS (1)
  - ILL-DEFINED DISORDER [None]
